FAERS Safety Report 14482150 (Version 2)
Quarter: 2018Q2

REPORT INFORMATION
  Report Type: Report from Study
  Country: US (occurrence: US)
  Receive Date: 20180202
  Receipt Date: 20180525
  Transmission Date: 20180711
  Serious: Yes (Other)
  Sender: FDA-Public Use
  Company Number: US-ACTELION-A-NJ2018-166677

PATIENT
  Age: 65 Year
  Sex: Female

DRUGS (18)
  1. CLONIDINE. [Concomitant]
     Active Substance: CLONIDINE
  2. LOSARTAN POTASSIUM. [Concomitant]
     Active Substance: LOSARTAN POTASSIUM
  3. MINOXIDIL. [Concomitant]
     Active Substance: MINOXIDIL
  4. TRACLEER [Suspect]
     Active Substance: BOSENTAN
     Indication: PULMONARY ARTERIAL HYPERTENSION
     Dosage: 125 MG, BID
     Route: 048
     Dates: start: 20120912
  5. NIFEDIPINE. [Concomitant]
     Active Substance: NIFEDIPINE
  6. METOPROLOL TARTRATE. [Concomitant]
     Active Substance: METOPROLOL TARTRATE
  7. LOSARTAN. [Concomitant]
     Active Substance: LOSARTAN
  8. HYDROXYZINE [Concomitant]
     Active Substance: HYDROXYZINE HYDROCHLORIDE
  9. EPOGEN [Concomitant]
     Active Substance: ERYTHROPOIETIN
  10. RENVELA [Concomitant]
     Active Substance: SEVELAMER CARBONATE
  11. HYDRALAZINE [Concomitant]
     Active Substance: HYDRALAZINE HYDROCHLORIDE
  12. ENALAPRIL [Concomitant]
     Active Substance: ENALAPRIL
  13. TUMS [Concomitant]
     Active Substance: CALCIUM CARBONATE
  14. SENSIPAR [Suspect]
     Active Substance: CINACALCET HYDROCHLORIDE
     Indication: PRODUCT USED FOR UNKNOWN INDICATION
     Route: 065
  15. LISINOPRIL. [Concomitant]
     Active Substance: LISINOPRIL
  16. KAYEXALATE [Concomitant]
     Active Substance: SODIUM POLYSTYRENE SULFONATE
  17. KIONEX [Concomitant]
     Active Substance: SODIUM POLYSTYRENE SULFONATE
  18. FERRLECIT [Concomitant]
     Active Substance: SODIUM FERRIC GLUCONATE COMPLEX

REACTIONS (13)
  - Haemoglobin decreased [Unknown]
  - Vomiting [Unknown]
  - Abdominal discomfort [Unknown]
  - Malaise [Unknown]
  - Haematocrit decreased [Unknown]
  - Headache [Unknown]
  - Blood phosphorus increased [Unknown]
  - Rectal haemorrhage [Recovered/Resolved]
  - Blood parathyroid hormone increased [Unknown]
  - Blood potassium increased [Unknown]
  - Chest pain [Not Recovered/Not Resolved]
  - Dizziness [Unknown]
  - Upper gastrointestinal haemorrhage [Recovered/Resolved]

NARRATIVE: CASE EVENT DATE: 20180102
